FAERS Safety Report 6162882-5 (Version None)
Quarter: 2009Q2

REPORT INFORMATION
  Report Type: 
  Country: None (occurrence: None)
  Receive Date: 20090421
  Receipt Date: 20081230
  Transmission Date: 20091009
  Serious: Yes (Other)
  Sender: FDA-Public Use
  Company Number: US-ASTRAZENECA-2008UW28923

PATIENT
  Age: 74 Year
  Weight: 108 kg

DRUGS (8)
  1. TOPROL-XL [Suspect]
     Indication: NERVOUSNESS
     Route: 048
  2. TOPROL-XL [Suspect]
     Indication: CHEST PAIN
     Route: 048
  3. ACIPHEX [Concomitant]
  4. BUMEX [Concomitant]
  5. CATAPRES [Concomitant]
  6. POTASSIUM CHLORIDE [Concomitant]
  7. XANAX [Concomitant]
  8. CLIMARA [Concomitant]

REACTIONS (2)
  - BRADYCARDIA [None]
  - FATIGUE [None]
